FAERS Safety Report 22085354 (Version 1)
Quarter: 2023Q1

REPORT INFORMATION
  Report Type: Report from Study
  Country: US (occurrence: US)
  Receive Date: 20230310
  Receipt Date: 20230310
  Transmission Date: 20230417
  Serious: Yes (Other)
  Sender: FDA-Public Use
  Company Number: US-ABBVIE-4335974

PATIENT
  Sex: Female

DRUGS (9)
  1. VENCLEXTA [Suspect]
     Active Substance: VENETOCLAX
     Indication: Chronic lymphocytic leukaemia
     Dosage: FORM STRENGTH: 100 MG
     Route: 048
  2. SPIRIVA RESPIMAT [Concomitant]
     Active Substance: TIOTROPIUM BROMIDE
     Indication: Product used for unknown indication
     Dosage: 2.5 MCG/ACT AERO SOLN INHALER
  3. PEPCID [Concomitant]
     Active Substance: FAMOTIDINE
     Indication: Product used for unknown indication
     Dosage: 20 MG TABLET
  4. LEVOTHYROXINE [Concomitant]
     Active Substance: LEVOTHYROXINE
     Indication: Product used for unknown indication
     Dosage: 75 MCG TABLET
  5. ALLOPURINOL [Concomitant]
     Active Substance: ALLOPURINOL
     Indication: Product used for unknown indication
     Dosage: 300 MG TABLET
  6. LEVOFLOXACIN [Concomitant]
     Active Substance: LEVOFLOXACIN
     Indication: Product used for unknown indication
     Dosage: 750 MG TABLET
  7. CALCIUM\CHOLECALCIFEROL [Concomitant]
     Active Substance: CALCIUM\CHOLECALCIFEROL
     Indication: Product used for unknown indication
     Route: 048
  8. ALENDRONATE [Concomitant]
     Active Substance: ALENDRONATE SODIUM
     Indication: Product used for unknown indication
     Dosage: 70 MG TABLET
  9. HUMAN IMMUNOGLOBULIN G [Concomitant]
     Active Substance: HUMAN IMMUNOGLOBULIN G
     Indication: Product used for unknown indication
     Dosage: 5 GM/50ML SOLUTION

REACTIONS (24)
  - Vocal cord paresis [Unknown]
  - Arteriosclerosis coronary artery [Unknown]
  - Aortic valve incompetence [Unknown]
  - Hypothyroidism [Unknown]
  - Hypervolaemia [Unknown]
  - Gastrooesophageal reflux disease [Unknown]
  - Restrictive pulmonary disease [Unknown]
  - Mitral valve prolapse [Unknown]
  - Febrile neutropenia [Unknown]
  - Renal failure [Unknown]
  - Pancytopenia [Unknown]
  - Deafness neurosensory [Unknown]
  - Malnutrition [Unknown]
  - Type V hyperlipidaemia [Unknown]
  - Neutropenia [Unknown]
  - Dysphonia [Unknown]
  - Sacral pain [Unknown]
  - Dysphagia [Unknown]
  - Coronary artery disease [Unknown]
  - Oedema peripheral [Unknown]
  - Pain in extremity [Unknown]
  - Osteoporosis [Unknown]
  - Tumour lysis syndrome [Unknown]
  - Peripheral swelling [Unknown]
